FAERS Safety Report 18077955 (Version 1)
Quarter: 2020Q3

REPORT INFORMATION
  Report Type: Report from Study
  Country: EC (occurrence: EC)
  Receive Date: 20200727
  Receipt Date: 20200727
  Transmission Date: 20201103
  Serious: Yes (Other)
  Sender: FDA-Public Use
  Company Number: NVSC2019EC057718

PATIENT
  Age: 66 Year
  Sex: Female

DRUGS (2)
  1. TASIGNA [Suspect]
     Active Substance: NILOTINIB
     Dosage: 200 MG, BID
     Route: 048
     Dates: start: 20200123, end: 202002
  2. TASIGNA [Suspect]
     Active Substance: NILOTINIB
     Indication: CHRONIC MYELOID LEUKAEMIA
     Dosage: 400 MG, BID
     Route: 048
     Dates: start: 20191101, end: 20191129

REACTIONS (13)
  - Vasculitis [Unknown]
  - Headache [Recovering/Resolving]
  - Immunodeficiency [Recovering/Resolving]
  - Binge eating [Not Recovered/Not Resolved]
  - Drug hypersensitivity [Unknown]
  - Acne [Recovering/Resolving]
  - Anaemia [Unknown]
  - Scratch [Recovering/Resolving]
  - Hunger [Not Recovered/Not Resolved]
  - Flatulence [Recovering/Resolving]
  - Somnolence [Unknown]
  - Dermatitis [Not Recovered/Not Resolved]
  - Nausea [Recovering/Resolving]

NARRATIVE: CASE EVENT DATE: 20191101
